FAERS Safety Report 15719752 (Version 3)
Quarter: 2019Q1

REPORT INFORMATION
  Report Type: Report from Study
  Country: US (occurrence: US)
  Receive Date: 20181213
  Receipt Date: 20190128
  Transmission Date: 20190417
  Serious: Yes (Death, Hospitalization)
  Sender: FDA-Public Use
  Company Number: US-ACTELION-A-NJ2018-183520

PATIENT
  Age: 68 Year
  Sex: Female
  Weight: 92.52 kg

DRUGS (4)
  1. LETAIRIS [Concomitant]
     Active Substance: AMBRISENTAN
  2. ADCIRCA [Concomitant]
     Active Substance: TADALAFIL
  3. XARELTO [Concomitant]
     Active Substance: RIVAROXABAN
  4. UPTRAVI [Suspect]
     Active Substance: SELEXIPAG
     Indication: PULMONARY ARTERIAL HYPERTENSION
     Dosage: 1600 MCG, BID
     Route: 048

REACTIONS (7)
  - Benign tumour excision [Unknown]
  - Ulcer haemorrhage [Unknown]
  - Perforated ulcer [Unknown]
  - Pneumonia [Unknown]
  - Transfusion [Unknown]
  - Benign oesophageal neoplasm [Unknown]
  - Death [Fatal]
